FAERS Safety Report 24125592 (Version 1)
Quarter: 2024Q3

REPORT INFORMATION
  Report Type: Spontaneous
  Country: US (occurrence: US)
  Receive Date: 20240723
  Receipt Date: 20240723
  Transmission Date: 20241017
  Serious: Yes (Hospitalization)
  Sender: PFIZER
  Company Number: US-PFIZER INC-202400219644

PATIENT
  Age: 52 Year
  Sex: Female

DRUGS (1)
  1. TUKYSA [Suspect]
     Active Substance: TUCATINIB
     Dosage: 150 MG, TWICE DAILY
     Route: 048
     Dates: start: 20240522

REACTIONS (1)
  - Pulmonary embolism [Unknown]
